FAERS Safety Report 8758796 (Version 4)
Quarter: 2012Q4

REPORT INFORMATION
  Report Type: 
  Country: JP (occurrence: JP)
  Receive Date: 20120829
  Receipt Date: 20120917
  Transmission Date: 20130627
  Serious: Yes (Life-Threatening, Hospitalization)
  Sender: FDA-Public Use
  Company Number: JP-B.I. PHARMACEUTICALS,INC./RIDGEFIELD-2012-BP-20342NB

PATIENT
  Age: 66 Year
  Sex: Female
  Weight: 50 kg

DRUGS (14)
  1. PRAZAXA [Suspect]
     Indication: ATRIAL FIBRILLATION
     Dosage: 300 mg
     Route: 048
     Dates: start: 2011, end: 20120819
  2. ARTIST [Concomitant]
     Indication: ARRHYTHMIA
     Dosage: 1.25 mg
     Route: 048
     Dates: start: 20110427
  3. DIOVAN [Concomitant]
     Indication: HYPERTENSION
     Dosage: 20 mg
     Route: 048
     Dates: start: 20120617
  4. NATRIX [Concomitant]
     Dosage: 0.5 mg
     Route: 048
     Dates: start: 20111204
  5. ATORVASTATIN [Concomitant]
     Indication: HYPERLIPIDAEMIA
     Dosage: 10 mg
     Route: 048
     Dates: start: 20120120
  6. LANSOPRAZOLE [Concomitant]
     Dosage: 15 mg
     Route: 048
     Dates: start: 20111203, end: 20120523
  7. VOGLIBOSE OD [Concomitant]
     Indication: TYPE 2 DIABETES MELLITUS
     Dosage: 0.3 mg
     Route: 048
     Dates: start: 20110513
  8. PL [Concomitant]
     Dosage: 4 g
     Route: 065
     Dates: start: 20110930, end: 20111004
  9. VEEN-F [Concomitant]
     Route: 042
     Dates: start: 20111202, end: 20111207
  10. TAKEPRON [Concomitant]
     Route: 042
     Dates: start: 20111203, end: 20111203
  11. ARTIFICIAL TEAR MYTEAR [Concomitant]
     Route: 031
     Dates: start: 20120112, end: 20120120
  12. GASRICK D [Concomitant]
     Dosage: 20 mg
     Route: 065
     Dates: start: 20120820, end: 20120826
  13. NICARPINE [Concomitant]
     Route: 042
     Dates: start: 20120819, end: 20120819
  14. LIPITOR [Concomitant]
     Dosage: 5 mg
     Route: 065
     Dates: start: 20110513, end: 20120125

REACTIONS (2)
  - Embolic stroke [Recovered/Resolved]
  - Drug ineffective [Unknown]
